FAERS Safety Report 10052154 (Version 1)
Quarter: 2014Q2

REPORT INFORMATION
  Report Type: Spontaneous
  Country: HR (occurrence: HR)
  Receive Date: 20140402
  Receipt Date: 20140402
  Transmission Date: 20141212
  Serious: Yes (Other)
  Sender: FDA-Public Use
  Company Number: HR-BAYER-2014-043645

PATIENT
  Age: 38 Year
  Sex: Female

DRUGS (2)
  1. BETAFERON COMBIPACK [Suspect]
     Indication: RELAPSING-REMITTING MULTIPLE SCLEROSIS
     Dosage: UNK
     Dates: start: 2008
  2. BROMERGON [Concomitant]
     Indication: BLOOD PROLACTIN INCREASED

REACTIONS (3)
  - Glioneuronal tumour [None]
  - Fall [None]
  - Hypotonia [None]
